FAERS Safety Report 5431078-4 (Version None)
Quarter: 2007Q3

REPORT INFORMATION
  Report Type: 
  Country: None (occurrence: None)
  Receive Date: 20070830
  Receipt Date: 20070220
  Transmission Date: 20080115
  Serious: Yes (Disabling, Other)
  Sender: FDA-Public Use
  Company Number: A0638569A

PATIENT
  Age: 15 Year
  Sex: Female

DRUGS (2)
  1. WELLBUTRIN XL [Suspect]
     Indication: DEPRESSION
     Dosage: 150MG PER DAY
     Route: 048
  2. NO CONCURRENT MEDICATION [Concomitant]

REACTIONS (6)
  - DERMATITIS CONTACT [None]
  - DRUG ERUPTION [None]
  - FACE OEDEMA [None]
  - LARYNGEAL OEDEMA [None]
  - PYREXIA [None]
  - URTICARIA [None]
